FAERS Safety Report 12621831 (Version 1)
Quarter: 2016Q3

REPORT INFORMATION
  Report Type: Spontaneous
  Country: US (occurrence: US)
  Receive Date: 20160804
  Receipt Date: 20160804
  Transmission Date: 20161109
  Serious: No
  Sender: FDA-Public Use
  Company Number: US-IROKO PHARMACEUTICALS LLC-US-I09001-16-00058

PATIENT
  Age: 60 Year
  Sex: Female

DRUGS (2)
  1. INDOCIN [Suspect]
     Active Substance: INDOMETHACIN\INDOMETHACIN SODIUM
     Indication: GOUT
     Route: 065
  2. CELEBREX [Suspect]
     Active Substance: CELECOXIB
     Indication: GOUT
     Route: 065

REACTIONS (2)
  - Abdominal discomfort [Unknown]
  - Off label use [Unknown]
